FAERS Safety Report 9441743 (Version 1)
Quarter: 2013Q3

REPORT INFORMATION
  Report Type: Spontaneous
  Country: US (occurrence: US)
  Receive Date: 20130806
  Receipt Date: 20130806
  Transmission Date: 20140515
  Serious: Yes (Hospitalization, Other)
  Sender: FDA-Public Use
  Company Number: US-ASTRAZENECA-2013SE58689

PATIENT
  Age: 67 Year
  Sex: Female
  Weight: 100.2 kg

DRUGS (4)
  1. TENORMIN [Suspect]
     Indication: BLOOD PRESSURE ABNORMAL
     Route: 048
     Dates: start: 2006, end: 2013
  2. TENORMIN [Suspect]
     Indication: BLOOD PRESSURE ABNORMAL
     Dosage: GENERIC
     Dates: start: 2013
  3. CRESTOR [Suspect]
     Indication: BLOOD CHOLESTEROL ABNORMAL
     Route: 048
     Dates: start: 2010, end: 2013
  4. FUROSEMIDE [Concomitant]
     Indication: DIURETIC THERAPY
     Dates: start: 1998

REACTIONS (5)
  - Arthritis [Unknown]
  - Arthritis infective [Unknown]
  - Cellulitis [Unknown]
  - Device dislocation [Unknown]
  - High density lipoprotein increased [Unknown]
